FAERS Safety Report 6501319-0 (Version None)
Quarter: 2009Q4

REPORT INFORMATION
  Report Type: 
  Country: None (occurrence: None)
  Receive Date: 20091215
  Receipt Date: 20091215
  Transmission Date: 20100525
  Serious: No
  Sender: FDA-Public Use
  Company Number: None

PATIENT

DRUGS (1)
  1. PHYTONADIONE [Suspect]

REACTIONS (3)
  - NEEDLE ISSUE [None]
  - PAIN [None]
  - PRODUCT SUBSTITUTION ISSUE [None]
